FAERS Safety Report 17478980 (Version 1)
Quarter: 2020Q1

REPORT INFORMATION
  Report Type: Report from Study
  Country: GB (occurrence: GB)
  Receive Date: 20200228
  Receipt Date: 20200228
  Transmission Date: 20200409
  Serious: Yes (Other)
  Sender: FDA-Public Use
  Company Number: GB-MYLANLABS-2020M1012553

PATIENT
  Age: 44 Year
  Sex: Female

DRUGS (1)
  1. TOBI PODHALER [Suspect]
     Active Substance: TOBRAMYCIN
     Indication: CYSTIC FIBROSIS
     Dosage: 28 MILLIGRAM, BID
     Route: 048
     Dates: start: 2019

REACTIONS (5)
  - Pharyngitis [Recovered/Resolved]
  - Respiratory tract infection [Recovered/Resolved]
  - Muscle spasms [Unknown]
  - Dyskinesia [Unknown]
  - Aphonia [Unknown]
